FAERS Safety Report 6853083-3 (Version None)
Quarter: 2010Q3

REPORT INFORMATION
  Report Type: 
  Country: None (occurrence: None)
  Receive Date: 20100717
  Receipt Date: 20071212
  Transmission Date: 20110219
  Serious: Yes (Other)
  Sender: FDA-Public Use
  Company Number: US-PFIZER INC-2007100371

PATIENT
  Sex: Male

DRUGS (1)
  1. VARENICLINE [Suspect]

REACTIONS (4)
  - ABNORMAL BEHAVIOUR [None]
  - ABNORMAL DREAMS [None]
  - DRUG INEFFECTIVE [None]
  - HALLUCINATION [None]
